FAERS Safety Report 8480764-0 (Version None)
Quarter: 2012Q2

REPORT INFORMATION
  Report Type: 
  Country: None (occurrence: None)
  Receive Date: 20120621
  Receipt Date: 20120612
  Transmission Date: 20120825
  Serious: Yes (Other)
  Sender: FDA-Public Use
  Company Number: DSA_57940_2012

PATIENT

DRUGS (3)
  1. OXALIPLATIN [Suspect]
     Indication: COLORECTAL CANCER STAGE III
     Dosage: 85 MG/M2 (EVERY CYCLE) INTRA-ARTERIAL
  2. FLUOROURACIL [Suspect]
     Indication: COLORECTAL CANCER STAGE III
     Dosage: 2400 MG/M2 INTRA-ARTERIAL
     Route: 013
  3. LEUCOVORIN CALCIUM [Suspect]
     Indication: COLORECTAL CANCER STAGE III
     Dosage: 200 MG/M2 INTRA-ARTERIAL
     Route: 013

REACTIONS (1)
  - HEPATOTOXICITY [None]
